FAERS Safety Report 6602536-1 (Version None)
Quarter: 2010Q1

REPORT INFORMATION
  Report Type: 
  Country: None (occurrence: None)
  Receive Date: 20100217
  Receipt Date: 20100204
  Transmission Date: 20100710
  Serious: Yes (Other)
  Sender: FDA-Public Use
  Company Number: DSA_42566_2010

PATIENT
  Sex: Male

DRUGS (5)
  1. XENAZINE [Suspect]
     Indication: TOURETTE'S DISORDER
     Dosage: (12.5 MG TID ORAL)
     Route: 048
     Dates: start: 20091119, end: 20100131
  2. DEPAKOTE [Concomitant]
  3. CLOMIPRAMINE HCL [Concomitant]
  4. HYDROXYZINE [Concomitant]
  5. PAROXETINE HCL [Concomitant]

REACTIONS (1)
  - NEUROLEPTIC MALIGNANT SYNDROME [None]
